FAERS Safety Report 18028632 (Version 1)
Quarter: 2020Q3

REPORT INFORMATION
  Report Type: Spontaneous
  Country: DE (occurrence: DE)
  Receive Date: 20200715
  Receipt Date: 20200715
  Transmission Date: 20201103
  Serious: Yes (Other)
  Sender: FDA-Public Use
  Company Number: DE-ASTRAZENECA-2020SE88946

PATIENT
  Age: 30 Year
  Sex: Female

DRUGS (1)
  1. LYNPARZA [Suspect]
     Active Substance: OLAPARIB
     Indication: BREAST CANCER
     Dosage: UNKNOWN
     Route: 048

REACTIONS (3)
  - Breast cancer [Unknown]
  - Blood count abnormal [Unknown]
  - Drug ineffective [Unknown]
